FAERS Safety Report 14659894 (Version 2)
Quarter: 2018Q1

REPORT INFORMATION
  Report Type: Spontaneous
  Country: AT (occurrence: AT)
  Receive Date: 20180320
  Receipt Date: 20180321
  Transmission Date: 20180509
  Serious: Yes (Hospitalization, Other)
  Sender: FDA-Public Use
  Company Number: PHHY2018AT038533

PATIENT
  Age: 64 Year
  Sex: Female

DRUGS (12)
  1. RISPERIDONE. [Suspect]
     Active Substance: RISPERIDONE
     Indication: DEPRESSION
     Dosage: 1 MG, QD (0-0-1)
     Route: 065
  2. ADJUVIN [Suspect]
     Active Substance: SERTRALINE HYDROCHLORIDE
     Indication: APATHY
  3. RISPERIDONE. [Suspect]
     Active Substance: RISPERIDONE
     Indication: PSYCHOMOTOR HYPERACTIVITY
  4. XANOR [Suspect]
     Active Substance: ALPRAZOLAM
     Indication: APATHY
  5. TRITTICO [Suspect]
     Active Substance: TRAZODONE HYDROCHLORIDE
     Indication: DEPRESSION
     Dosage: 150 MG, QD(0-0-0-1)
     Route: 065
  6. TRITTICO [Suspect]
     Active Substance: TRAZODONE HYDROCHLORIDE
     Indication: APATHY
  7. RISPERIDONE. [Suspect]
     Active Substance: RISPERIDONE
     Indication: APATHY
  8. XANOR [Suspect]
     Active Substance: ALPRAZOLAM
     Indication: DEPRESSION
     Dosage: 0.5 MG, BID (0-1-1)
     Route: 065
  9. XANOR [Suspect]
     Active Substance: ALPRAZOLAM
     Indication: PSYCHOMOTOR HYPERACTIVITY
  10. TRITTICO [Suspect]
     Active Substance: TRAZODONE HYDROCHLORIDE
     Indication: PSYCHOMOTOR HYPERACTIVITY
  11. ADJUVIN [Suspect]
     Active Substance: SERTRALINE HYDROCHLORIDE
     Indication: DEPRESSION
     Dosage: 100 MG, QD(1-0-0)
     Route: 065
  12. ADJUVIN [Suspect]
     Active Substance: SERTRALINE HYDROCHLORIDE
     Indication: PSYCHOMOTOR HYPERACTIVITY

REACTIONS (2)
  - Acute coronary syndrome [Recovered/Resolved]
  - Dyspnoea [Recovered/Resolved]
